FAERS Safety Report 8842842 (Version 3)
Quarter: 2012Q4

REPORT INFORMATION
  Report Type: 
  Country: JP (occurrence: JP)
  Receive Date: 20121016
  Receipt Date: 20121122
  Transmission Date: 20130627
  Serious: Yes (Hospitalization)
  Sender: FDA-Public Use
  Company Number: JP-BRISTOL-MYERS SQUIBB COMPANY-17032921

PATIENT
  Age: 69 Year
  Sex: Male
  Weight: 52 kg

DRUGS (3)
  1. ORENCIA FOR INJ 250 MG/VIAL [Suspect]
     Indication: RHEUMATOID ARTHRITIS
     Dosage: total: 4 dose
     Route: 041
     Dates: start: 20120801, end: 20120928
  2. AMARYL [Concomitant]
     Indication: DIABETES MELLITUS
     Dosage: tabs
     Route: 048
     Dates: start: 20120728
  3. MUCOSTA [Concomitant]
     Indication: PROPHYLAXIS
     Dosage: tabs
     Route: 048
     Dates: start: 20120728

REACTIONS (2)
  - Enterocolitis infectious [Recovered/Resolved]
  - Melaena [Recovered/Resolved]
